FAERS Safety Report 6663724-1 (Version None)
Quarter: 2010Q2

REPORT INFORMATION
  Report Type: 
  Country: None (occurrence: None)
  Receive Date: 20100401
  Receipt Date: 20100324
  Transmission Date: 20101027
  Serious: Yes (Other)
  Sender: FDA-Public Use
  Company Number: SE-PFIZER INC-2010038266

PATIENT
  Age: 73 Year
  Sex: Female
  Weight: 67 kg

DRUGS (3)
  1. LIPITOR [Suspect]
     Dosage: 20 MG, HALF TABLET DAILY
     Dates: start: 20100201, end: 20100322
  2. EMCONCOR [Concomitant]
     Dosage: 5 MG, UNK
  3. METFORMIN HYDROCHLORIDE/SITAGLIPTIN [Concomitant]
     Dosage: 25 MG, 2X/DAY

REACTIONS (3)
  - DISCOMFORT [None]
  - FORMICATION [None]
  - SLEEP DISORDER [None]
